FAERS Safety Report 9745716 (Version 3)
Quarter: 2013Q4

REPORT INFORMATION
  Report Type: Report from Study
  Country: US (occurrence: US)
  Receive Date: 20131211
  Receipt Date: 20131223
  Transmission Date: 20140711
  Serious: Yes (Death)
  Sender: FDA-Public Use
  Company Number: US-ASTELLAS-2012US010226

PATIENT
  Age: 89 Year
  Sex: Male

DRUGS (6)
  1. ERLOTINIB TABLET [Suspect]
     Indication: LUNG CARCINOMA CELL TYPE UNSPECIFIED STAGE 0
     Dosage: 100 MG, UID/QD
     Route: 048
     Dates: start: 20120806, end: 20120903
  2. ERLOTINIB TABLET [Suspect]
     Dosage: 100 MG, QOD (M, W, F)
     Route: 048
     Dates: start: 20120904
  3. TAMSULOSIN [Concomitant]
     Indication: PRODUCT USED FOR UNKNOWN INDICATION
     Dosage: UNK
     Route: 065
  4. EXFORGE [Concomitant]
     Indication: PRODUCT USED FOR UNKNOWN INDICATION
     Dosage: UNK
     Route: 065
  5. GLIMEPIRIDE [Concomitant]
     Indication: PRODUCT USED FOR UNKNOWN INDICATION
     Dosage: UNK
     Route: 065
  6. JANUMET [Concomitant]
     Indication: PRODUCT USED FOR UNKNOWN INDICATION
     Dosage: UNK
     Route: 065

REACTIONS (6)
  - Incorrect dose administered [Unknown]
  - Death [Fatal]
  - Rash [Recovering/Resolving]
  - Abdominal pain [Unknown]
  - Diarrhoea [Recovered/Resolved]
  - Eye irritation [Unknown]
